FAERS Safety Report 10769329 (Version 1)
Quarter: 2015Q1

REPORT INFORMATION
  Report Type: Spontaneous
  Country: IT (occurrence: None)
  Receive Date: 20150204
  Receipt Date: 20150204
  Transmission Date: 20150721
  Serious: Yes (Other)
  Sender: FDA-Public Use
  Company Number: FK201500475

PATIENT

DRUGS (4)
  1. DOCETAXEL (MANUFACTURER UNKNOWN) (DOCETAXEL) (DOCETAXEL) [Suspect]
     Active Substance: DOCETAXEL
     Indication: NEOPLASM MALIGNANT
     Dosage: 75 MG/M2, ON DAY 1 AND THEN REPEATED EVERY 21 DAYS
     Route: 042
  2. CISPLATIN (MANUFACTURER UNKNOWN) (CISPLATIN) (CISPLATIN) [Suspect]
     Active Substance: CISPLATIN
     Indication: NEOPLASM MALIGNANT
     Dosage: 75 MG/M2, ON DAY 1 AND THEN REPEATED EVERY 21 DAYS
     Route: 042
  3. DOCETAXEL (MANUFACTURER UNKNOWN) (DOCETAXEL) (DOCETAXEL) [Suspect]
     Active Substance: DOCETAXEL
     Indication: METASTASES TO LYMPH NODES
     Dosage: 75 MG/M2, ON DAY 1 AND THEN REPEATED EVERY 21 DAYS
     Route: 042
  4. CISPLATIN (MANUFACTURER UNKNOWN) (CISPLATIN) (CISPLATIN) [Suspect]
     Active Substance: CISPLATIN
     Indication: METASTASES TO LYMPH NODES
     Dosage: 75 MG/M2, ON DAY 1 AND THEN REPEATED EVERY 21 DAYS
     Route: 042

REACTIONS (1)
  - Hypertransaminasaemia [None]
